FAERS Safety Report 5301160-0 (Version None)
Quarter: 2007Q2

REPORT INFORMATION
  Report Type: 
  Country: None (occurrence: None)
  Receive Date: 20070418
  Receipt Date: 20070406
  Transmission Date: 20071010
  Serious: Yes (Hospitalization, Other)
  Sender: FDA-Public Use
  Company Number: JP-PFIZER INC-2007020447

PATIENT
  Sex: Male

DRUGS (2)
  1. XALATAN [Suspect]
     Indication: GLAUCOMA
     Route: 031
     Dates: start: 20070214, end: 20070217
  2. DETANTOL [Concomitant]
     Indication: GLAUCOMA
     Route: 031

REACTIONS (2)
  - KERATITIS HERPETIC [None]
  - VIRAL IRITIS [None]
